FAERS Safety Report 6706238-2 (Version None)
Quarter: 2010Q2

REPORT INFORMATION
  Report Type: 
  Country: None (occurrence: None)
  Receive Date: 20100430
  Receipt Date: 20100430
  Transmission Date: 20101027
  Serious: No
  Sender: FDA-Public Use
  Company Number: None

PATIENT
  Sex: Female
  Weight: 51 kg

DRUGS (2)
  1. TAXOL [Suspect]
     Dosage: 640 MG
  2. CARBOPLATIN [Suspect]
     Dosage: 940 MG

REACTIONS (2)
  - BODY TEMPERATURE INCREASED [None]
  - NEUTROPENIA [None]
